FAERS Safety Report 4407636-2 (Version None)
Quarter: 2004Q3

REPORT INFORMATION
  Report Type: 
  Country: None (occurrence: None)
  Receive Date: 20040721
  Receipt Date: 20040715
  Transmission Date: 20050211
  Serious: Yes (Other)
  Sender: FDA-Public Use
  Company Number: HQWYE685403NOV03

PATIENT
  Age: 42 Year
  Sex: Female

DRUGS (4)
  1. DIMETAPP (BROMPBHENIRAMINE/PHENYLPROPANOLAMINE, EXTENTAB) [Suspect]
     Indication: NASOPHARYNGITIS
     Dosage: ORAL
     Dates: start: 19960803
  2. ALKA-SELTZER PLUS (ACETYLSALICYLIC ACID/CHLORPHENAMINE MALEATE/PHENYLP [Suspect]
  3. CORICIDIN(CHLORPHENAMINEMALEATE/PARACETAMOL/PHENYLPROPANOLAMINE) [Suspect]
  4. ROBITUSSIN CF(GUAIFENESIN/DEXTROMETHORPHAN/PHENYLPROPANOLAMINE, SYRUP [Suspect]
     Route: 048

REACTIONS (1)
  - CEREBROVASCULAR ACCIDENT [None]
